FAERS Safety Report 25276446 (Version 2)
Quarter: 2025Q2

REPORT INFORMATION
  Report Type: Report from Study
  Country: CA (occurrence: CA)
  Receive Date: 20250507
  Receipt Date: 20250626
  Transmission Date: 20250717
  Serious: Yes (Other)
  Sender: SANDOZ
  Company Number: CA-SANDOZ-SDZ2025CA028223

PATIENT
  Age: 62 Year
  Sex: Female

DRUGS (1)
  1. HYRIMOZ [Suspect]
     Active Substance: ADALIMUMAB-ADAZ
     Indication: Psoriatic arthropathy
     Dosage: 40 MG IN .04 ML HCF;BIWEEKLY
     Route: 058
     Dates: end: 202505

REACTIONS (9)
  - Epistaxis [Not Recovered/Not Resolved]
  - Influenza like illness [Unknown]
  - Pain [Unknown]
  - Ear discomfort [Unknown]
  - Rhinalgia [Unknown]
  - Nasal discharge discolouration [Unknown]
  - Arthralgia [Unknown]
  - Fatigue [Unknown]
  - Therapy cessation [Unknown]

NARRATIVE: CASE EVENT DATE: 20250501
